FAERS Safety Report 6229982-2 (Version None)
Quarter: 2009Q2

REPORT INFORMATION
  Report Type: 
  Country: None (occurrence: None)
  Receive Date: 20090615
  Receipt Date: 20090601
  Transmission Date: 20091009
  Serious: Yes (Hospitalization)
  Sender: FDA-Public Use
  Company Number: IT-MYLANLABS-2009S1009593

PATIENT
  Age: 5 Year
  Sex: Female

DRUGS (7)
  1. PARACETAMOL [Suspect]
     Indication: PYREXIA
     Dosage: TWO TOTAL DOSES OVER 5 HOURS
     Route: 048
  2. IBUPROFEN [Suspect]
     Indication: PYREXIA
     Dosage: THREE TOTAL DOSES
     Route: 048
  3. DIAZEPAM [Concomitant]
     Indication: FEBRILE CONVULSION
     Route: 054
  4. NIFEDIPINE [Concomitant]
     Indication: HYPERTENSION
  5. FUROSEMIDE [Concomitant]
     Indication: HYPERTENSION
  6. VERAPAMIL [Concomitant]
     Indication: HYPERTENSION
  7. CEFTRIAXONE [Concomitant]

REACTIONS (4)
  - ELECTROENCEPHALOGRAM ABNORMAL [None]
  - HEPATIC FAILURE [None]
  - HYPERTENSION [None]
  - RENAL FAILURE ACUTE [None]
